FAERS Safety Report 23690856 (Version 1)
Quarter: 2024Q1

REPORT INFORMATION
  Report Type: Spontaneous
  Country: US (occurrence: None)
  Receive Date: 20240329
  Receipt Date: 20240329
  Transmission Date: 20240410
  Serious: No
  Sender: FDA-Public Use
  Company Number: None

PATIENT

DRUGS (1)
  1. BOTULINUM TOXIN TYPE A [Suspect]
     Active Substance: BOTULINUM TOXIN TYPE A

REACTIONS (23)
  - Product complaint [None]
  - Iatrogenic injury [None]
  - Exophthalmos [None]
  - Diplopia [None]
  - Gastrointestinal disorder [None]
  - Dyspnoea [None]
  - Dysphonia [None]
  - Dysphagia [None]
  - Eyelid ptosis [None]
  - Nausea [None]
  - Vomiting [None]
  - Constipation [None]
  - Vision blurred [None]
  - Dizziness [None]
  - Dysarthria [None]
  - Tongue disorder [None]
  - Dysphonia [None]
  - Dry mouth [None]
  - Asthenia [None]
  - Fatigue [None]
  - Paraesthesia [None]
  - Urinary incontinence [None]
  - Slow speech [None]

NARRATIVE: CASE EVENT DATE: 20240301
